FAERS Safety Report 23192334 (Version 1)
Quarter: 2023Q4

REPORT INFORMATION
  Report Type: Report from Study
  Country: PT (occurrence: PT)
  Receive Date: 20231116
  Receipt Date: 20231116
  Transmission Date: 20240110
  Serious: Yes (Hospitalization)
  Sender: FDA-Public Use
  Company Number: PT-Eisai Medical Research-EC-2023-148341

PATIENT
  Age: 64 Year
  Sex: Male
  Weight: 51 kg

DRUGS (10)
  1. LENVATINIB [Suspect]
     Active Substance: LENVATINIB
     Indication: Squamous cell carcinoma of head and neck
     Dosage: SUSPENSION; ROUTE: GASTROSTOMY TUBE; GASTRIC USE
     Route: 048
     Dates: start: 20230821, end: 20230821
  2. LENVATINIB [Suspect]
     Active Substance: LENVATINIB
     Dosage: SUSPENSION; ROUTE: GASTROSTOMY TUBE; GASTRIC USE
     Dates: start: 20230822, end: 20230903
  3. LENVATINIB [Suspect]
     Active Substance: LENVATINIB
     Dosage: SUSPENSION; ROUTE: GASTROSTOMY TUBE; GASTRIC USE
     Dates: start: 20231002, end: 20231022
  4. PEMBROLIZUMAB [Suspect]
     Active Substance: PEMBROLIZUMAB
     Indication: Squamous cell carcinoma of head and neck
     Route: 042
     Dates: start: 20230821, end: 20230821
  5. PEMBROLIZUMAB [Suspect]
     Active Substance: PEMBROLIZUMAB
     Route: 042
     Dates: start: 20231002, end: 20231002
  6. FOLIC ACID [Concomitant]
     Active Substance: FOLIC ACID
     Dates: start: 20230320, end: 20230828
  7. IRON [Concomitant]
     Active Substance: IRON
     Dates: start: 20230320, end: 20230828
  8. MIRTAZAPINE [Concomitant]
     Active Substance: MIRTAZAPINE
  9. LORAZEPAM [Concomitant]
     Active Substance: LORAZEPAM
     Dates: start: 20230630
  10. DOMPERIDONE [Concomitant]
     Active Substance: DOMPERIDONE
     Dates: start: 20230613

REACTIONS (1)
  - Pancreatitis [Not Recovered/Not Resolved]

NARRATIVE: CASE EVENT DATE: 20230828
